FAERS Safety Report 11576265 (Version 1)
Quarter: 2015Q3

REPORT INFORMATION
  Report Type: Spontaneous
  Country: US (occurrence: None)
  Receive Date: 20150929
  Receipt Date: 20150929
  Transmission Date: 20151125
  Serious: No
  Sender: FDA-Public Use
  Company Number: None

PATIENT
  Age: 57 Year
  Sex: Male
  Weight: 112.4 kg

DRUGS (1)
  1. PIPERACILLIN/TAZOBACTAM [Suspect]
     Active Substance: PIPERACILLIN SODIUM\TAZOBACTAM SODIUM
     Indication: PRODUCT USED FOR UNKNOWN INDICATION
     Route: 042
     Dates: start: 20150609, end: 20150612

REACTIONS (33)
  - Tubulointerstitial nephritis [None]
  - Malnutrition [None]
  - Hypotension [None]
  - Duodenal ulcer [None]
  - Enterococcal infection [None]
  - Fluid overload [None]
  - Heparin-induced thrombocytopenia [None]
  - Hepatitis alcoholic [None]
  - Anaemia macrocytic [None]
  - Urinary tract infection bacterial [None]
  - Blood albumin decreased [None]
  - Protein total decreased [None]
  - Enterococcal sepsis [None]
  - Wernicke^s encephalopathy [None]
  - Alcohol abuse [None]
  - Atrial fibrillation [None]
  - Acute kidney injury [None]
  - Thrombocytopenia [None]
  - Upper gastrointestinal haemorrhage [None]
  - Respiratory failure [None]
  - Delirium [None]
  - Alcohol withdrawal syndrome [None]
  - Splenomegaly [None]
  - Haemorrhagic anaemia [None]
  - Hyperglycaemia [None]
  - Obesity [None]
  - Portal hypertension [None]
  - Adrenal insufficiency [None]
  - Hepatomegaly [None]
  - Hyperphosphataemia [None]
  - Haemodialysis [None]
  - Peritonitis [None]
  - Hypocalcaemia [None]

NARRATIVE: CASE EVENT DATE: 20150612
